FAERS Safety Report 9236972 (Version 4)
Quarter: 2014Q2

REPORT INFORMATION
  Report Type: Spontaneous
  Country: JP (occurrence: JP)
  Receive Date: 20130417
  Receipt Date: 20140530
  Transmission Date: 20141212
  Serious: Yes (Other)
  Sender: FDA-Public Use
  Company Number: JP-ASTRAZENECA-2013SE24378

PATIENT
  Age: 74 Year
  Sex: Female
  Weight: 71 kg

DRUGS (7)
  1. MARCAIN SPINAL [Suspect]
     Indication: SPINAL ANAESTHESIA
     Route: 037
     Dates: start: 20130206, end: 20130206
  2. CARBOCAIN [Suspect]
     Route: 065
     Dates: start: 20130206, end: 20130206
  3. POPSCAINE [Suspect]
     Indication: POSTOPERATIVE ANALGESIA
     Route: 008
     Dates: start: 20130206, end: 20130207
  4. DIPRIVAN [Concomitant]
     Indication: SEDATION
     Route: 042
     Dates: start: 20130206, end: 20130206
  5. EPHEDRIN [Concomitant]
     Indication: ANTIBIOTIC PROPHYLAXIS
     Route: 042
     Dates: start: 20130206, end: 20130206
  6. CEFAZOLIN SODIUM [Concomitant]
     Indication: ANTIBIOTIC PROPHYLAXIS
     Route: 042
     Dates: start: 20130206, end: 20130206
  7. VOLTAREN [Concomitant]
     Indication: POSTOPERATIVE ANALGESIA
     Route: 054
     Dates: start: 20130206, end: 20130207

REACTIONS (1)
  - Cauda equina syndrome [Recovered/Resolved with Sequelae]
